FAERS Safety Report 17170428 (Version 3)
Quarter: 2020Q1

REPORT INFORMATION
  Report Type: Spontaneous
  Country: US (occurrence: US)
  Receive Date: 20191218
  Receipt Date: 20200302
  Transmission Date: 20200409
  Serious: Yes (Hospitalization, Other)
  Sender: FDA-Public Use
  Company Number: US-STRONGBRIDGE BIOPHARMA-2019-STR-000325

PATIENT
  Age: 31 Year
  Sex: Female

DRUGS (2)
  1. KEVEYIS [Suspect]
     Active Substance: DICHLORPHENAMIDE
     Indication: FAMILIAL PERIODIC PARALYSIS
     Dosage: 50 MG, BID
     Route: 048
     Dates: start: 20191204
  2. TOPIRAMATE. [Suspect]
     Active Substance: TOPIRAMATE
     Indication: PRODUCT USED FOR UNKNOWN INDICATION
     Dosage: UNK

REACTIONS (16)
  - Muscle spasms [Unknown]
  - Disease recurrence [Recovering/Resolving]
  - Hypoaesthesia [Unknown]
  - Muscle twitching [Not Recovered/Not Resolved]
  - Chronic kidney disease [Unknown]
  - Disease progression [None]
  - Metabolic acidosis [Recovering/Resolving]
  - Memory impairment [Not Recovered/Not Resolved]
  - Sinus tachycardia [Recovering/Resolving]
  - Disease recurrence [Unknown]
  - Paraesthesia [Unknown]
  - Blood potassium decreased [Unknown]
  - Paralysis [Not Recovered/Not Resolved]
  - Spinal stroke [Unknown]
  - Clumsiness [Unknown]
  - Hypokalaemia [Unknown]

NARRATIVE: CASE EVENT DATE: 201912
